FAERS Safety Report 5892879-1 (Version None)
Quarter: 2008Q3

REPORT INFORMATION
  Report Type: 
  Country: None (occurrence: None)
  Receive Date: 20080923
  Receipt Date: 20080918
  Transmission Date: 20090109
  Serious: Yes (Life-Threatening, Hospitalization, Other)
  Sender: FDA-Public Use
  Company Number: GB-WYE-G01573408

PATIENT
  Age: 29 Year
  Sex: Female
  Weight: 55.7 kg

DRUGS (8)
  1. TAZOCIN [Suspect]
     Indication: LIVER ABSCESS
     Dosage: 4.5G FREQUENCY UNKNOWN
     Route: 042
     Dates: start: 20080417, end: 20080505
  2. FERROUS SULFATE TAB [Concomitant]
     Indication: MINERAL SUPPLEMENTATION
     Route: 048
  3. OMEPRAZOLE [Concomitant]
     Route: 048
  4. OMEPRAZOLE [Concomitant]
     Indication: PROPHYLAXIS
     Route: 048
     Dates: start: 20030101
  5. ACETAMINOPHEN [Concomitant]
     Indication: ANALGESIA
     Route: 048
  6. PENTASA [Concomitant]
     Indication: CROHN'S DISEASE
     Route: 048
     Dates: start: 20030101
  7. HEPARIN-FRACTION, SODIUM SALT [Suspect]
     Indication: THROMBOSIS PROPHYLAXIS
     Dosage: 40 MG FREQUENCY UNKNOWN
     Route: 058
     Dates: start: 20080422, end: 20080505
  8. LAMICTAL [Concomitant]
     Indication: EPILEPSY
     Route: 048
     Dates: start: 20050101

REACTIONS (6)
  - CHEST DISCOMFORT [None]
  - GRANULOCYTOPENIA [None]
  - LYMPHOPENIA [None]
  - MUSCLE SPASMS [None]
  - NEUTROPENIC SEPSIS [None]
  - THROMBOCYTOPENIA [None]
